FAERS Safety Report 14807831 (Version 1)
Quarter: 2018Q2

REPORT INFORMATION
  Report Type: Spontaneous
  Country: CO (occurrence: CO)
  Receive Date: 20180425
  Receipt Date: 20180425
  Transmission Date: 20180711
  Serious: Yes (Hospitalization)
  Sender: FDA-Public Use
  Company Number: CO-BAYER-2018-079766

PATIENT
  Age: 73 Year
  Sex: Female

DRUGS (1)
  1. ULTRAVIST? 300 [Suspect]
     Active Substance: IOPROMIDE
     Indication: COMPUTERISED TOMOGRAM
     Dosage: UNK, ONCE
     Dates: start: 20180403, end: 20180403

REACTIONS (25)
  - Dyspnoea [None]
  - Cough [None]
  - Cardiac failure [None]
  - Abdominal pain upper [None]
  - Dyspepsia [None]
  - Diarrhoea [None]
  - Restlessness [None]
  - Epistaxis [None]
  - Pulmonary fibrosis [None]
  - Lung disorder [None]
  - Acute respiratory distress syndrome [None]
  - Chronic obstructive pulmonary disease [None]
  - Choking sensation [None]
  - Chest pain [None]
  - Interstitial lung disease [None]
  - Back pain [Recovering/Resolving]
  - Dyspnoea [Recovering/Resolving]
  - Chest pain [Recovering/Resolving]
  - Fatigue [None]
  - Ventricular extrasystoles [None]
  - Chest X-ray abnormal [None]
  - Oedema peripheral [None]
  - Cardiac failure [None]
  - Oedema peripheral [None]
  - Lung infiltration [None]

NARRATIVE: CASE EVENT DATE: 20180403
